FAERS Safety Report 9418734 (Version 4)
Quarter: 2013Q3

REPORT INFORMATION
  Report Type: Spontaneous
  Country: US (occurrence: US)
  Receive Date: 20130725
  Receipt Date: 20130827
  Transmission Date: 20140515
  Serious: Yes (Other)
  Sender: FDA-Public Use
  Company Number: US-PFIZER INC-2013215962

PATIENT
  Sex: Male

DRUGS (1)
  1. CHANTIX [Suspect]
     Indication: TOBACCO USER
     Dosage: 1 MG, 2X/DAY
     Route: 048
     Dates: start: 20130715, end: 20130720

REACTIONS (7)
  - Glossodynia [Unknown]
  - Skin exfoliation [Unknown]
  - Pain [Unknown]
  - Drug hypersensitivity [Unknown]
  - Tongue blistering [Unknown]
  - Blister [Unknown]
  - Swollen tongue [Unknown]
